FAERS Safety Report 21130690 (Version 1)
Quarter: 2022Q3

REPORT INFORMATION
  Report Type: Spontaneous
  Country: PL (occurrence: PL)
  Receive Date: 20220726
  Receipt Date: 20220726
  Transmission Date: 20221027
  Serious: Yes (Other)
  Sender: FDA-Public Use
  Company Number: PL-PBT-004905

PATIENT
  Age: 51 Year
  Sex: Male

DRUGS (4)
  1. TACROLIMUS [Suspect]
     Active Substance: TACROLIMUS
     Indication: Prophylaxis against transplant rejection
     Route: 065
     Dates: start: 201801
  2. MYCOPHENOLATE MOFETIL [Suspect]
     Active Substance: MYCOPHENOLATE MOFETIL
     Indication: Prophylaxis against transplant rejection
     Route: 065
     Dates: start: 201801
  3. PREDNISONE [Suspect]
     Active Substance: PREDNISONE
     Indication: Prophylaxis against transplant rejection
     Route: 065
     Dates: start: 201801
  4. TACROLIMUS [Suspect]
     Active Substance: TACROLIMUS
     Indication: Prophylaxis against transplant rejection
     Route: 065
     Dates: start: 201801

REACTIONS (18)
  - Nephropathy toxic [Recovered/Resolved]
  - Pruritus [Unknown]
  - Anaemia [Recovered/Resolved]
  - Cholestasis [Recovered/Resolved]
  - Liver injury [Unknown]
  - Hepatic artery stenosis [Unknown]
  - Cytomegalovirus infection [Unknown]
  - End stage renal disease [Recovered/Resolved]
  - Condition aggravated [Unknown]
  - Metabolic acidosis [Unknown]
  - Bacteraemia [Unknown]
  - Pancytopenia [Unknown]
  - Ischaemic stroke [Recovered/Resolved]
  - Liver disorder [Unknown]
  - Transplant rejection [Unknown]
  - Treatment noncompliance [Unknown]
  - Renal failure [Recovered/Resolved]
  - Enterococcal infection [Unknown]

NARRATIVE: CASE EVENT DATE: 20180101
